FAERS Safety Report 23427955 (Version 1)
Quarter: 2024Q1

REPORT INFORMATION
  Report Type: Spontaneous
  Country: US (occurrence: US)
  Receive Date: 20240122
  Receipt Date: 20240122
  Transmission Date: 20240410
  Serious: Yes (Life-Threatening, Other)
  Sender: FDA-Public Use
  Company Number: US-PFIZER INC-202400018463

PATIENT
  Age: 67 Year
  Sex: Female

DRUGS (27)
  1. XELJANZ [Suspect]
     Active Substance: TOFACITINIB CITRATE
     Dosage: 5 MG EVERY OTHER DAY, ALTERNATING WITH 2 TABLETS (10 MG) EVERY OTHER DAY
     Route: 048
     Dates: start: 20171114, end: 20231201
  2. XELJANZ [Suspect]
     Active Substance: TOFACITINIB CITRATE
     Dosage: 5 MG EVERY OTHER DAY, ALTERNATING WITH 2 TABLETS (10 MG) EVERY OTHER DAY
     Route: 048
     Dates: start: 20171114, end: 20231201
  3. DAILY-VITE [Concomitant]
     Dosage: 400 UG
  4. FLUZONE HIGH DOSE QUADRIVALENT [Concomitant]
     Dosage: HIGH-DOSE QUAD 240MCG
  5. FOLIC ACID [Concomitant]
     Active Substance: FOLIC ACID
     Dosage: 1 MG
  6. JANSSEN COVID-19 VACCINE [Concomitant]
     Active Substance: AD26.COV2.S
     Indication: COVID-19 immunisation
     Dosage: DOSE NUMBER UNKNOWN, 0.5ML SINGLE
  7. CALCIUM [Concomitant]
     Active Substance: CALCIUM
     Dosage: OYSTER SHELL CALCIUM 500(125)
  8. TYLENOL [Concomitant]
     Active Substance: ACETAMINOPHEN
     Dosage: 325 MG
  9. VITAMIN D3 [Concomitant]
     Active Substance: CHOLECALCIFEROL
     Dosage: 25 UG
  10. OMEPRAZOLE [Concomitant]
     Active Substance: OMEPRAZOLE
     Dosage: 40 MG
  11. GABAPENTIN [Concomitant]
     Active Substance: GABAPENTIN
     Dosage: 100 MG
  12. PREDNISONE [Concomitant]
     Active Substance: PREDNISONE
     Dosage: 2.5 MG
  13. CEPHALEXIN [Concomitant]
     Active Substance: CEPHALEXIN
     Dosage: 500 MG
  14. AMIODARONE HYDROCHLORIDE [Concomitant]
     Active Substance: AMIODARONE HYDROCHLORIDE
     Dosage: 200 MG
  15. HYDROCHLOROTHIAZIDE\TELMISARTAN [Concomitant]
     Active Substance: HYDROCHLOROTHIAZIDE\TELMISARTAN
     Dosage: TELMISARTAN-HYDROCHLOR - 80 MG-2
  16. GLIPIZIDE [Concomitant]
     Active Substance: GLIPIZIDE
     Dosage: 10 MG
  17. KLOR-CON M20 [Concomitant]
     Active Substance: POTASSIUM CHLORIDE
     Dosage: 20 MEQ
  18. TRAMADOL HCL [Concomitant]
     Active Substance: TRAMADOL HYDROCHLORIDE
     Dosage: 50 MG
  19. PROCTOFOAM [Concomitant]
     Active Substance: PRAMOXINE HYDROCHLORIDE
     Dosage: 1 %
  20. NAPROXEN [Concomitant]
     Active Substance: NAPROXEN
     Dosage: 500 MG
  21. METOPROLOL TARTRATE [Concomitant]
     Active Substance: METOPROLOL TARTRATE
     Dosage: 50 MG
  22. DOXYCYCLINE HYCLATE [Concomitant]
     Active Substance: DOXYCYCLINE HYCLATE
     Dosage: 100 MG
  23. HYDRALAZINE HCL [Concomitant]
     Active Substance: HYDRALAZINE HYDROCHLORIDE
     Dosage: 100 MG
  24. XARELTO [Concomitant]
     Active Substance: RIVAROXABAN
     Dosage: 20 MG
  25. HYDROXYCHLOROQUINE SULFATE [Concomitant]
     Active Substance: HYDROXYCHLOROQUINE SULFATE
     Dosage: 200 MG
  26. CEVIMELINE HYDROCHLORIDE [Concomitant]
     Active Substance: CEVIMELINE HYDROCHLORIDE
     Dosage: 30 MG
  27. FARXIGA [Concomitant]
     Active Substance: DAPAGLIFLOZIN PROPANEDIOL
     Dosage: 10 MG

REACTIONS (3)
  - Squamous cell carcinoma [Not Recovered/Not Resolved]
  - Skin cancer [Not Recovered/Not Resolved]
  - Off label use [Unknown]

NARRATIVE: CASE EVENT DATE: 20171114
